FAERS Safety Report 6769211-4 (Version None)
Quarter: 2010Q2

REPORT INFORMATION
  Report Type: 
  Country: None (occurrence: None)
  Receive Date: 20100604
  Receipt Date: 20100520
  Transmission Date: 20101027
  Serious: Yes (Other)
  Sender: FDA-Public Use
  Company Number: 2010002197

PATIENT
  Sex: Female
  Weight: 2.3 kg

DRUGS (1)
  1. FRAGMIN [Suspect]
     Indication: ASSISTED FERTILISATION
     Dosage: 5000 IU, 1XDAY, TRANSPLACENTAL
     Route: 064
     Dates: start: 20090825, end: 20100423

REACTIONS (4)
  - AMNIOTIC FLUID VOLUME DECREASED [None]
  - CAESAREAN SECTION [None]
  - DRUG EXPOSURE DURING PREGNANCY [None]
  - FOETAL GROWTH RETARDATION [None]
